FAERS Safety Report 7244529-X (Version None)
Quarter: 2011Q1

REPORT INFORMATION
  Report Type: 
  Country: None (occurrence: None)
  Receive Date: 20110125
  Receipt Date: 20110114
  Transmission Date: 20110831
  Serious: Yes (Other)
  Sender: FDA-Public Use
  Company Number: ES-ELI_LILLY_AND_COMPANY-ES201009007043

PATIENT
  Age: 59 Year
  Sex: Male

DRUGS (19)
  1. BYETTA [Suspect]
     Dosage: 10 UG, 3/D
     Dates: start: 20100611, end: 20100823
  2. ATACAND [Concomitant]
     Indication: HYPERTENSION
     Dosage: 32 D/F, DAILY (1/D)
     Route: 048
  3. PLAVIX [Concomitant]
     Indication: MYOCARDIAL ISCHAEMIA
     Dosage: 75 D/F, DAILY (1/D)
     Route: 048
  4. BYETTA [Suspect]
     Dosage: 10 UG, 2/D
  5. SEGURIL [Concomitant]
     Indication: HYPERTENSION
     Dosage: 40 MG, 2/D
     Route: 048
  6. NITRODERM [Concomitant]
  7. ZYLORIC [Concomitant]
     Indication: HYPERURICAEMIA
     Dosage: 300 MG, DAILY (1/D)
     Route: 048
  8. BYETTA [Suspect]
     Indication: TYPE 2 DIABETES MELLITUS
     Dosage: 5 UG, 2/D
     Dates: start: 20090626, end: 20090729
  9. METFORMIN HCL [Concomitant]
     Indication: TYPE 2 DIABETES MELLITUS
     Dosage: 850 MG, 2/D
     Route: 048
  10. ADOLONTA [Concomitant]
     Indication: PAIN
     Dosage: 1 D/F, 3/D
     Route: 048
  11. LORAZEPAM [Concomitant]
     Indication: INSOMNIA
     Dosage: 2 MG, DAILY (1/D)
     Route: 048
  12. OMEPRAZOLE [Concomitant]
     Indication: GASTRIC DISORDER
     Dosage: 20 MG, DAILY (1/D)
     Route: 048
  13. DINISOR [Concomitant]
     Indication: HYPERTENSION
     Dosage: 120 MG, 2/D
     Route: 048
  14. LYRICA [Concomitant]
     Indication: PAIN
     Dosage: 75 MG, 4/D
     Route: 048
  15. ZARATOR [Concomitant]
     Indication: HYPERCHOLESTEROLAEMIA
     Dosage: 40 MG, DAILY (1/D)
     Route: 048
  16. NOVONORM [Concomitant]
     Indication: TYPE 2 DIABETES MELLITUS
     Dosage: 2 MG, 3/D
     Route: 048
  17. ADIRO [Concomitant]
     Indication: MYOCARDIAL ISCHAEMIA
     Dosage: 100 D/F, DAILY (1/D)
     Route: 048
  18. CITALOPRAM [Concomitant]
     Indication: DEPRESSION
     Dosage: 1 D/F, DAILY (1/D)
     Route: 048
  19. FERROSANOL [Concomitant]
     Indication: ANAEMIA
     Dosage: 1 D/F, DAILY (1/D)
     Route: 048

REACTIONS (3)
  - RENAL FAILURE [None]
  - INAPPROPRIATE SCHEDULE OF DRUG ADMINISTRATION [None]
  - DECREASED APPETITE [None]
